FAERS Safety Report 5076542-5 (Version None)
Quarter: 2006Q3

REPORT INFORMATION
  Report Type: 
  Country: None (occurrence: None)
  Receive Date: 20060807
  Receipt Date: 20060725
  Transmission Date: 20061208
  Serious: Yes (Hospitalization)
  Sender: FDA-Public Use
  Company Number: 2006091945

PATIENT
  Age: 58 Year
  Sex: Female
  Weight: 82 kg

DRUGS (5)
  1. SUTENT [Suspect]
     Indication: METASTATIC RENAL CELL CARCINOMA
     Dosage: 50 MG (50 MG, 1 IN 1 D), ORAL
     Route: 048
     Dates: start: 20060711
  2. RABEPRAZOLE SODIUM [Concomitant]
  3. MERSYNDOL (CODEINE PHOSPHATE, DOXYLAMINE SUCCINATE, PARACETAMOL) [Concomitant]
  4. MURELAX (OXAZEPAM) [Concomitant]
  5. ACETAMINOPHEN [Concomitant]

REACTIONS (4)
  - NAUSEA [None]
  - PAIN [None]
  - THROMBOCYTOPENIA [None]
  - VOMITING [None]
